FAERS Safety Report 6051126-0 (Version None)
Quarter: 2009Q1

REPORT INFORMATION
  Report Type: 
  Country: None (occurrence: None)
  Receive Date: 20090126
  Receipt Date: 20010709
  Transmission Date: 20090719
  Serious: No
  Sender: FDA-Public Use
  Company Number: US-ABBOTT-08P-163-0448593-00

PATIENT
  Sex: Male

DRUGS (2)
  1. TRICOR [Suspect]
     Indication: DRUG USE FOR UNKNOWN INDICATION
  2. TRICOR (MICRONIZED) [Suspect]

REACTIONS (2)
  - BLOOD TRIGLYCERIDES INCREASED [None]
  - DRUG INTOLERANCE [None]
